FAERS Safety Report 6507701-X (Version None)
Quarter: 2009Q4

REPORT INFORMATION
  Report Type: 
  Country: None (occurrence: None)
  Receive Date: 20091221
  Receipt Date: 20091211
  Transmission Date: 20100525
  Serious: Yes (Hospitalization)
  Sender: FDA-Public Use
  Company Number: A0809344A

PATIENT
  Age: 47 Year
  Sex: Male

DRUGS (1)
  1. NICORETTE WHITE ICE OTC [Suspect]
     Indication: SMOKING CESSATION THERAPY
     Dosage: 4GUM PER DAY
     Route: 002
     Dates: start: 20090820

REACTIONS (2)
  - ATRIAL FIBRILLATION [None]
  - PALPITATIONS [None]
